FAERS Safety Report 7582601-5 (Version None)
Quarter: 2011Q2

REPORT INFORMATION
  Report Type: 
  Country: None (occurrence: None)
  Receive Date: 20110630
  Receipt Date: 20110624
  Transmission Date: 20111010
  Serious: No
  Sender: FDA-Public Use
  Company Number: US-PFIZER INC-2011142581

PATIENT
  Sex: Female

DRUGS (3)
  1. XALATAN [Suspect]
     Indication: PROPHYLAXIS
  2. LATANOPROST [Suspect]
  3. XALATAN [Suspect]
     Indication: GLAUCOMA

REACTIONS (4)
  - EYE PRURITUS [None]
  - EYE IRRITATION [None]
  - NAUSEA [None]
  - ABNORMAL SENSATION IN EYE [None]
